FAERS Safety Report 14505526 (Version 1)
Quarter: 2018Q1

REPORT INFORMATION
  Report Type: Spontaneous
  Country: CA (occurrence: CA)
  Receive Date: 20180208
  Receipt Date: 20180208
  Transmission Date: 20180509
  Serious: Yes (Other)
  Sender: FDA-Public Use
  Company Number: CA-REGENERON PHARMACEUTICALS, INC.-2018-12498

PATIENT

DRUGS (2)
  1. EYLEA [Suspect]
     Active Substance: AFLIBERCEPT
     Indication: CYSTOID MACULAR OEDEMA
     Dosage: 3 INJECTIONS PRIOR TO THE EVENT
  2. EYLEA [Suspect]
     Active Substance: AFLIBERCEPT
     Indication: RETINAL VEIN OCCLUSION
     Dosage: LAST INJECTION PRIOR TO THE EVENT
     Dates: start: 20171218, end: 20171218

REACTIONS (2)
  - Endophthalmitis [Unknown]
  - Inadequate aseptic technique in use of product [Unknown]
